FAERS Safety Report 7954339-3 (Version None)
Quarter: 2011Q4

REPORT INFORMATION
  Report Type: 
  Country: None (occurrence: None)
  Receive Date: 20111122
  Receipt Date: 20111111
  Transmission Date: 20120403
  Serious: Yes (Other)
  Sender: FDA-Public Use
  Company Number: AEDEU201100310

PATIENT
  Age: 70 Year
  Sex: Female

DRUGS (2)
  1. GAMUNEX [Suspect]
  2. GAMUNEX [Suspect]
     Indication: PRODUCT USED FOR UNKNOWN INDICATION
     Dosage: 12 GM;QM;IV
     Route: 042
     Dates: start: 20110114

REACTIONS (1)
  - THROMBOPHLEBITIS [None]
